FAERS Safety Report 7982114-2 (Version None)
Quarter: 2011Q4

REPORT INFORMATION
  Report Type: 
  Country: None (occurrence: None)
  Receive Date: 20111212
  Receipt Date: 20111206
  Transmission Date: 20120403
  Serious: Yes (Hospitalization, Other)
  Sender: FDA-Public Use
  Company Number: 2010SP065562

PATIENT
  Age: 27 Year
  Sex: Female
  Weight: 74.8435 kg

DRUGS (2)
  1. IBUPROFEN (ADVIL) [Concomitant]
  2. NUVARING [Suspect]
     Indication: CONTRACEPTION
     Dates: start: 20080601, end: 20090111

REACTIONS (34)
  - ELECTROCARDIOGRAM T WAVE ABNORMAL [None]
  - GROIN PAIN [None]
  - VASCULAR CALCIFICATION [None]
  - PULMONARY EMBOLISM [None]
  - HYPOTHYROIDISM [None]
  - BUNDLE BRANCH BLOCK RIGHT [None]
  - PLEURISY [None]
  - PAIN IN EXTREMITY [None]
  - CARDIOMEGALY [None]
  - UTERINE CERVICAL SQUAMOUS METAPLASIA [None]
  - ELECTROCARDIOGRAM CHANGE [None]
  - GESTATIONAL DIABETES [None]
  - OVARIAN CYST [None]
  - THROMBOSIS [None]
  - ARTERIOSCLEROSIS [None]
  - URINARY TRACT INFECTION [None]
  - PAIN [None]
  - DEPRESSION [None]
  - EMOTIONAL DISORDER [None]
  - VERTIGO [None]
  - LUNG NEOPLASM [None]
  - PREGNANCY [None]
  - MULTIPLE INJURIES [None]
  - DIZZINESS [None]
  - DIPLOPIA [None]
  - OCCUPATIONAL EXPOSURE TO TOXIC AGENT [None]
  - MIGRAINE [None]
  - HEPATIC STEATOSIS [None]
  - PAIN IN JAW [None]
  - SINUS TACHYCARDIA [None]
  - ANGINA PECTORIS [None]
  - ANXIETY [None]
  - HYPOTENSION [None]
  - MATERNAL EXPOSURE DURING PREGNANCY [None]
